FAERS Safety Report 7070957-1 (Version None)
Quarter: 2010Q4

REPORT INFORMATION
  Report Type: 
  Country: None (occurrence: None)
  Receive Date: 20101029
  Receipt Date: 20101021
  Transmission Date: 20110411
  Serious: Yes (Hospitalization)
  Sender: FDA-Public Use
  Company Number: IE-PFIZER INC-2008090376

PATIENT
  Age: 71 Year
  Sex: Male

DRUGS (4)
  1. LIPITOR [Suspect]
     Indication: CORONARY ARTERY BYPASS
     Dosage: 20 MG, 1X/DAY
     Route: 048
     Dates: end: 20080701
  2. FUSIDIC ACID [Interacting]
     Indication: OSTEOMYELITIS
     Dosage: 1.5 G, UNK
  3. FLUCLOXACILLIN [Concomitant]
  4. BENZYLPENICILLIN [Concomitant]

REACTIONS (3)
  - CORONARY ARTERY BYPASS [None]
  - DRUG INTERACTION [None]
  - RHABDOMYOLYSIS [None]
